FAERS Safety Report 9220298 (Version 1)
Quarter: 2013Q2

REPORT INFORMATION
  Report Type: Spontaneous
  Country: US (occurrence: US)
  Receive Date: 20130409
  Receipt Date: 20130409
  Transmission Date: 20140414
  Serious: Yes (Other)
  Sender: FDA-Public Use
  Company Number: CHPA2013US005843

PATIENT
  Age: 82 Year
  Sex: Female

DRUGS (1)
  1. GAS-X EXTRA STRENGTH SOFTGELS [Suspect]
     Indication: FLATULENCE
     Dosage: 6 TO 7 DF, QD
     Route: 048

REACTIONS (3)
  - Haematochezia [Recovered/Resolved]
  - Abnormal faeces [Unknown]
  - Overdose [Unknown]
